FAERS Safety Report 6835610-5 (Version None)
Quarter: 2010Q3

REPORT INFORMATION
  Report Type: 
  Country: None (occurrence: None)
  Receive Date: 20100713
  Receipt Date: 20100705
  Transmission Date: 20110219
  Serious: Yes (Other)
  Sender: FDA-Public Use
  Company Number: US-JNJFOC-20100701997

PATIENT
  Age: 22 Year
  Sex: Male

DRUGS (4)
  1. HALOPERIDOL [Suspect]
     Indication: PRODUCT USED FOR UNKNOWN INDICATION
     Route: 065
  2. LITHIUM [Suspect]
     Indication: PRODUCT USED FOR UNKNOWN INDICATION
     Route: 065
  3. RISPERIDONE [Concomitant]
     Indication: HALLUCINATION, AUDITORY
     Route: 065
  4. RISPERIDONE [Concomitant]
     Route: 065

REACTIONS (2)
  - HALLUCINATION, AUDITORY [None]
  - SALIVARY HYPERSECRETION [None]
